FAERS Safety Report 6071066-0 (Version None)
Quarter: 2009Q1

REPORT INFORMATION
  Report Type: 
  Country: None (occurrence: None)
  Receive Date: 20090209
  Receipt Date: 20080818
  Transmission Date: 20090719
  Serious: No
  Sender: FDA-Public Use
  Company Number: A0740937A

PATIENT
  Age: 72 Year
  Sex: Female
  Weight: 59.1 kg

DRUGS (3)
  1. PAXIL CR [Suspect]
     Indication: FIBROMYALGIA
     Dosage: 12.5MG PER DAY
     Route: 048
     Dates: start: 20080710, end: 20080701
  2. PAXIL [Suspect]
     Indication: DRUG USE FOR UNKNOWN INDICATION
     Route: 048
  3. KLONOPIN [Concomitant]
     Dosage: 1MG AT NIGHT
     Route: 048

REACTIONS (5)
  - ANOREXIA [None]
  - FATIGUE [None]
  - INSOMNIA [None]
  - MALAISE [None]
  - NAUSEA [None]
